FAERS Safety Report 19039266 (Version 1)
Quarter: 2021Q1

REPORT INFORMATION
  Report Type: Spontaneous
  Country: FI (occurrence: FI)
  Receive Date: 20210322
  Receipt Date: 20210322
  Transmission Date: 20210420
  Serious: Yes (Hospitalization, Other)
  Sender: FDA-Public Use
  Company Number: FI-PFIZER INC-2021250255

PATIENT
  Age: 51 Year
  Sex: Female

DRUGS (3)
  1. TRIPTYL [Concomitant]
     Active Substance: AMITRIPTYLINE HYDROCHLORIDE
     Indication: INSOMNIA
     Dosage: 10 MG, DAILY
  2. ESTRING [Suspect]
     Active Substance: ESTRADIOL
     Indication: HORMONE REPLACEMENT THERAPY
     Dosage: UNK
     Route: 067
     Dates: start: 20210118, end: 20210219
  3. PARACETAMOL [Concomitant]
     Active Substance: ACETAMINOPHEN
     Indication: PAIN
     Dosage: UNK

REACTIONS (2)
  - Abdominal pain lower [Recovering/Resolving]
  - Uterine infection [Recovering/Resolving]

NARRATIVE: CASE EVENT DATE: 20210201
